FAERS Safety Report 4327161-7 (Version None)
Quarter: 2004Q1

REPORT INFORMATION
  Report Type: 
  Country: None (occurrence: None)
  Receive Date: 20040330
  Receipt Date: 20040318
  Transmission Date: 20041129
  Serious: Yes (Hospitalization, Other)
  Sender: FDA-Public Use
  Company Number: GB-GLAXOSMITHKLINE-B0327311A

PATIENT
  Sex: Female
  Weight: 70 kg

DRUGS (7)
  1. ACYCLOVIR [Suspect]
     Indication: HERPES ZOSTER
     Dosage: 400MG SEE DOSAGE TEXT
     Route: 048
     Dates: start: 20040305, end: 20040308
  2. OMEPRAZOLE [Concomitant]
     Dosage: 20MG PER DAY
     Route: 048
  3. SEVELAMER [Concomitant]
     Dosage: 800MG TWICE PER DAY
     Route: 048
  4. AMLODIPINE [Concomitant]
     Dosage: 10MG PER DAY
     Route: 048
  5. ATENOLOL [Concomitant]
     Dosage: 50MG PER DAY
     Route: 048
  6. ALFACALCIDOL [Concomitant]
     Dosage: .25MCG PER DAY
     Route: 065
  7. DIALYSIS [Concomitant]

REACTIONS (3)
  - CONFUSIONAL STATE [None]
  - DISORIENTATION [None]
  - NEUROTOXICITY [None]
